FAERS Safety Report 13809979 (Version 5)
Quarter: 2018Q1

REPORT INFORMATION
  Report Type: Report from Study
  Country: US (occurrence: US)
  Receive Date: 20170728
  Receipt Date: 20180125
  Transmission Date: 20180508
  Serious: No
  Sender: FDA-Public Use
  Company Number: US-AMGEN-USASL2017075318

PATIENT
  Age: 78 Year
  Sex: Male

DRUGS (2)
  1. REPATHA [Suspect]
     Active Substance: EVOLOCUMAB
     Indication: HYPERCHOLESTEROLAEMIA
     Dosage: 140 MG, Q2WK
     Route: 065
  2. REPATHA [Suspect]
     Active Substance: EVOLOCUMAB
     Indication: LOW DENSITY LIPOPROTEIN INCREASED

REACTIONS (7)
  - Oropharyngeal pain [Unknown]
  - Back pain [Unknown]
  - Arthralgia [Unknown]
  - Rash erythematous [Unknown]
  - Gastrooesophageal reflux disease [Not Recovered/Not Resolved]
  - Arthropathy [Unknown]
  - Ligament rupture [Unknown]

NARRATIVE: CASE EVENT DATE: 20170517
